FAERS Safety Report 18900750 (Version 1)
Quarter: 2021Q1

REPORT INFORMATION
  Report Type: Report from Study
  Country: HN (occurrence: HN)
  Receive Date: 20210216
  Receipt Date: 20210216
  Transmission Date: 20210420
  Serious: Yes (Other)
  Sender: FDA-Public Use
  Company Number: NVSC2021HN034901

PATIENT
  Age: 80 Year
  Sex: Male

DRUGS (2)
  1. DIOVAN [Suspect]
     Active Substance: VALSARTAN
     Indication: PRODUCT USED FOR UNKNOWN INDICATION
     Dosage: 320 MG, (STARTED 20 OR 25 YEARS AGO APPROXIMATELY AND STOPPED 6 MONTHS AGO APPROXIMATELY)
     Route: 065
  2. CODIOVAN [Suspect]
     Active Substance: HYDROCHLOROTHIAZIDE\VALSARTAN
     Indication: PRODUCT USED FOR UNKNOWN INDICATION
     Dosage: 1 DF (320/25 MG, STARTED 6 MONTHS AGO APPROXIMATELY)
     Route: 065

REACTIONS (3)
  - Hypertension [Unknown]
  - Anxiety [Unknown]
  - Stress [Unknown]
